FAERS Safety Report 7724572-4 (Version None)
Quarter: 2011Q3

REPORT INFORMATION
  Report Type: 
  Country: None (occurrence: None)
  Receive Date: 20110829
  Receipt Date: 20110818
  Transmission Date: 20111222
  Serious: Yes (Death)
  Sender: FDA-Public Use
  Company Number: TPA2011A04848

PATIENT
  Age: 80 Year
  Sex: Male
  Weight: 82.1011 kg

DRUGS (1)
  1. ACTOS [Suspect]
     Indication: TYPE 2 DIABETES MELLITUS
     Dosage: 45 MG, 1 IN 1 D, PER ORAL
     Route: 048
     Dates: start: 20070101, end: 20110101

REACTIONS (5)
  - METASTASES TO LIVER [None]
  - METASTASES TO BONE [None]
  - BLADDER CANCER [None]
  - METASTASES TO LUNG [None]
  - METASTASES TO LYMPH NODES [None]
